FAERS Safety Report 17662007 (Version 5)
Quarter: 2020Q2

REPORT INFORMATION
  Report Type: Spontaneous
  Country: US (occurrence: US)
  Receive Date: 20200413
  Receipt Date: 20200605
  Transmission Date: 20200713
  Serious: Yes (Hospitalization)
  Sender: FDA-Public Use
  Company Number: US-SHIRE-US202013192

PATIENT
  Sex: Male

DRUGS (1)
  1. GATTEX [Suspect]
     Active Substance: TEDUGLUTIDE\WATER
     Indication: PRODUCT USED FOR UNKNOWN INDICATION
     Dosage: 0.3710 UNK UNIT, 1X/DAY:QD
     Route: 058
     Dates: start: 20180925

REACTIONS (3)
  - Electrolyte imbalance [Not Recovered/Not Resolved]
  - Hospitalisation [Recovered/Resolved]
  - Inappropriate schedule of product administration [Not Recovered/Not Resolved]
